FAERS Safety Report 10029579 (Version 1)
Quarter: 2014Q1

REPORT INFORMATION
  Report Type: Spontaneous
  Country: US (occurrence: None)
  Receive Date: 20140320
  Receipt Date: 20140320
  Transmission Date: 20141002
  Serious: Yes (Other)
  Sender: FDA-Public Use
  Company Number: None

PATIENT
  Age: 25 Year
  Sex: Female
  Weight: 54.43 kg

DRUGS (1)
  1. CITALOPRAM [Suspect]
     Indication: GENERALISED ANXIETY DISORDER
     Dosage: 1 AND 1/2 PILLS ONCE DAILY TAKEN BY MOUTH
     Route: 048
     Dates: start: 20131216, end: 20140319

REACTIONS (7)
  - Dysuria [None]
  - Urinary tract infection [None]
  - Dysuria [None]
  - Pollakiuria [None]
  - Micturition urgency [None]
  - Urine abnormality [None]
  - Red blood cells urine [None]
